FAERS Safety Report 5222870-X (Version None)
Quarter: 2007Q1

REPORT INFORMATION
  Report Type: 
  Country: None (occurrence: None)
  Receive Date: 20070129
  Receipt Date: 20070122
  Transmission Date: 20070707
  Serious: Yes (Other)
  Sender: FDA-Public Use
  Company Number: US-PFIZER INC-2005156374

PATIENT
  Sex: Male

DRUGS (4)
  1. CELEBREX [Suspect]
     Indication: RHEUMATOID ARTHRITIS
  2. MORPHINE [Suspect]
     Indication: PAIN
     Dosage: TEXT:UNKNOWN-FREQ:UNKNOWN
     Route: 065
  3. ETODOLAC [Suspect]
     Indication: RHEUMATOID ARTHRITIS
     Dosage: TEXT:UNKNOWN-FREQ:UNKNOWN
     Route: 065
  4. TYLENOL [Concomitant]
     Route: 065

REACTIONS (4)
  - ADVERSE DRUG REACTION [None]
  - ASPIRATION JOINT [None]
  - HERNIA REPAIR [None]
  - PAIN [None]
